FAERS Safety Report 18737491 (Version 2)
Quarter: 2021Q1

REPORT INFORMATION
  Report Type: Spontaneous
  Country: US (occurrence: US)
  Receive Date: 20210113
  Receipt Date: 20210129
  Transmission Date: 20210419
  Serious: Yes (Other)
  Sender: FDA-Public Use
  Company Number: US-ALLERGAN-2048520US

PATIENT
  Sex: Female

DRUGS (3)
  1. TIMOLOL. [Concomitant]
     Active Substance: TIMOLOL
     Indication: INFLAMMATION
     Dosage: UNK
     Route: 047
  2. KYBELLA [Suspect]
     Active Substance: DEOXYCHOLIC ACID
     Indication: LIPOLYSIS PROCEDURE
     Dosage: 2 ML, SINGLE
     Route: 058
     Dates: start: 20201104, end: 20201104
  3. DORZOLAMIDE [Concomitant]
     Active Substance: DORZOLAMIDE
     Indication: INFLAMMATION
     Dosage: UNK
     Route: 047

REACTIONS (8)
  - Injection site nodule [Not Recovered/Not Resolved]
  - Injection site swelling [Not Recovered/Not Resolved]
  - Injection site erythema [Recovering/Resolving]
  - Injection site infection [Recovering/Resolving]
  - Injection site induration [Recovering/Resolving]
  - Drug intolerance [Unknown]
  - Keloid scar [Unknown]
  - Injection site vesicles [Recovering/Resolving]

NARRATIVE: CASE EVENT DATE: 2020
